FAERS Safety Report 25087885 (Version 1)
Quarter: 2025Q1

REPORT INFORMATION
  Report Type: Report from Study
  Country: US (occurrence: US)
  Receive Date: 20250318
  Receipt Date: 20250318
  Transmission Date: 20250409
  Serious: Yes (Congenital Anomaly, Other)
  Sender: GILEAD
  Company Number: US-GILEAD-2025-0707370

PATIENT

DRUGS (2)
  1. BICTEGRAVIR\EMTRICITABINE\TENOFOVIR ALAFENAMIDE [Suspect]
     Active Substance: BICTEGRAVIR\EMTRICITABINE\TENOFOVIR ALAFENAMIDE
     Indication: Product used for unknown indication
     Dosage: 275 MG, QD
     Route: 064
     Dates: start: 20250306
  2. DOVATO [Suspect]
     Active Substance: DOLUTEGRAVIR SODIUM\LAMIVUDINE
     Indication: Product used for unknown indication
     Dosage: 350 MG, QD
     Route: 064
     Dates: start: 20220822, end: 20250306

REACTIONS (3)
  - Hypoplastic left heart syndrome [Unknown]
  - Foetal cardiac disorder [Unknown]
  - Foetal exposure during pregnancy [Not Recovered/Not Resolved]
